FAERS Safety Report 10011890 (Version 3)
Quarter: 2014Q4

REPORT INFORMATION
  Report Type: Spontaneous
  Country: US (occurrence: US)
  Receive Date: 20140314
  Receipt Date: 20141111
  Transmission Date: 20150528
  Serious: Yes (Hospitalization, Disabling, Other)
  Sender: FDA-Public Use
  Company Number: US-SANOFI-AVENTIS-2012SA003206

PATIENT
  Age: 23 Year
  Sex: Female

DRUGS (1)
  1. PLAVIX [Suspect]
     Active Substance: CLOPIDOGREL BISULFATE
     Indication: INJURY
     Route: 048
     Dates: start: 20080509, end: 20080511

REACTIONS (11)
  - Psychological trauma [Not Recovered/Not Resolved]
  - Tension [Not Recovered/Not Resolved]
  - Deformity [Not Recovered/Not Resolved]
  - Gastrointestinal haemorrhage [Unknown]
  - Multiple injuries [Not Recovered/Not Resolved]
  - Loss of employment [Not Recovered/Not Resolved]
  - Pain [Not Recovered/Not Resolved]
  - Social problem [Not Recovered/Not Resolved]
  - Physical disability [Not Recovered/Not Resolved]
  - Anhedonia [Not Recovered/Not Resolved]
  - Economic problem [Not Recovered/Not Resolved]

NARRATIVE: CASE EVENT DATE: 20080511
